FAERS Safety Report 10968978 (Version 1)
Quarter: 2015Q1

REPORT INFORMATION
  Report Type: Spontaneous
  Country: BR (occurrence: BR)
  Receive Date: 20150331
  Receipt Date: 20150331
  Transmission Date: 20150721
  Serious: Yes (Death, Hospitalization, Other)
  Sender: FDA-Public Use
  Company Number: BR-ABBVIE-15K-020-1368066-00

PATIENT
  Age: 44 Year
  Sex: Male

DRUGS (2)
  1. HUMIRA [Suspect]
     Active Substance: ADALIMUMAB
     Indication: PSORIASIS
     Route: 065
     Dates: start: 2012
  2. METHOTREXATE [Concomitant]
     Active Substance: METHOTREXATE
     Indication: PRODUCT USED FOR UNKNOWN INDICATION

REACTIONS (11)
  - Eructation [Unknown]
  - Arterial disorder [Unknown]
  - Septic shock [Fatal]
  - Renal failure [Unknown]
  - Arterial occlusive disease [Unknown]
  - Abdominal distension [Unknown]
  - Pancreatitis acute [Fatal]
  - Angina pectoris [Unknown]
  - Infrequent bowel movements [Unknown]
  - Pain [Unknown]
  - Jaundice [Unknown]
